FAERS Safety Report 7302875-5 (Version None)
Quarter: 2011Q1

REPORT INFORMATION
  Report Type: 
  Country: None (occurrence: None)
  Receive Date: 20110218
  Receipt Date: 20110214
  Transmission Date: 20110831
  Serious: Yes (Other)
  Sender: FDA-Public Use
  Company Number: JP-ALLERGAN-1014951US

PATIENT
  Age: 51 Year
  Sex: Male

DRUGS (4)
  1. BOTOX [Suspect]
     Indication: TORTICOLLIS
     Dosage: UNK
     Route: 030
  2. MORPHINE [Concomitant]
     Indication: PAIN
     Dosage: 125 MG, QD
     Route: 065
  3. TEGRETOL [Concomitant]
     Indication: PAIN
     Route: 048
  4. MORPHINE [Concomitant]
     Route: 065

REACTIONS (1)
  - MUSCLE ATROPHY [None]
